FAERS Safety Report 16178171 (Version 2)
Quarter: 2019Q3

REPORT INFORMATION
  Report Type: Spontaneous
  Country: US (occurrence: US)
  Receive Date: 20190410
  Receipt Date: 20190701
  Transmission Date: 20191004
  Serious: Yes (Other)
  Sender: FDA-Public Use
  Company Number: US-009507513-1904USA003224

PATIENT
  Age: 55 Year
  Sex: Female

DRUGS (6)
  1. DABRAFENIB [Concomitant]
     Active Substance: DABRAFENIB
     Indication: METASTATIC MALIGNANT MELANOMA
     Dosage: UNK
  2. VEMURAFENIB. [Concomitant]
     Active Substance: VEMURAFENIB
     Indication: METASTATIC MALIGNANT MELANOMA
     Dosage: UNK
  3. VEMURAFENIB. [Concomitant]
     Active Substance: VEMURAFENIB
     Indication: MALIGNANT NEOPLASM PROGRESSION
  4. DABRAFENIB [Concomitant]
     Active Substance: DABRAFENIB
     Indication: MALIGNANT NEOPLASM PROGRESSION
  5. KEYTRUDA [Suspect]
     Active Substance: PEMBROLIZUMAB
     Indication: MALIGNANT NEOPLASM PROGRESSION
  6. KEYTRUDA [Suspect]
     Active Substance: PEMBROLIZUMAB
     Indication: METASTATIC MALIGNANT MELANOMA
     Dosage: 2 MILLIGRAM/KILOGRAM

REACTIONS (2)
  - Paraneoplastic retinopathy [Recovering/Resolving]
  - Immune-mediated adverse reaction [Recovering/Resolving]
